FAERS Safety Report 10912526 (Version 1)
Quarter: 2015Q1

REPORT INFORMATION
  Report Type: Other
  Country: DK (occurrence: DK)
  Receive Date: 20150313
  Receipt Date: 20150313
  Transmission Date: 20150721
  Serious: Yes (Hospitalization)
  Sender: FDA-Public Use
  Company Number: DK-ENDO PHARMACEUTICALS INC.-2014ZX000025

PATIENT
  Age: 57 Year
  Sex: Male

DRUGS (7)
  1. BURANA [Suspect]
     Active Substance: IBUPROFEN
     Indication: PAIN
     Route: 048
  2. SUMATRIPTAN INJECTION [Suspect]
     Active Substance: SUMATRIPTAN
     Indication: PAIN
     Route: 065
  3. DOLOL [Suspect]
     Active Substance: TRAMADOL
     Indication: PAIN
     Route: 048
  4. IMOCLONE [Suspect]
     Active Substance: ZOPICLONE
     Indication: PAIN
     Route: 048
  5. DICLON [Suspect]
     Active Substance: DICLOFENAC SODIUM
     Indication: PAIN
     Route: 065
  6. MANDOLGIN [Suspect]
     Active Substance: TRAMADOL
     Indication: PAIN
     Route: 048
  7. PANODIL [Suspect]
     Active Substance: ACETAMINOPHEN
     Indication: PAIN
     Route: 065

REACTIONS (6)
  - Palpitations [Recovered/Resolved]
  - Anxiety [Unknown]
  - Panic reaction [Unknown]
  - Chest pain [Recovered/Resolved]
  - Product use issue [Recovered/Resolved]
  - Supraventricular tachycardia [Recovered/Resolved]

NARRATIVE: CASE EVENT DATE: 2011
